FAERS Safety Report 17311640 (Version 1)
Quarter: 2020Q1

REPORT INFORMATION
  Report Type: Spontaneous
  Country: US (occurrence: US)
  Receive Date: 20200123
  Receipt Date: 20200123
  Transmission Date: 20200409
  Serious: No
  Sender: FDA-Public Use
  Company Number: US-ROCHE-2263144

PATIENT
  Sex: Female
  Weight: 100.33 kg

DRUGS (3)
  1. METHOTREXATE. [Concomitant]
     Active Substance: METHOTREXATE
     Route: 065
  2. RITUXAN [Suspect]
     Active Substance: RITUXIMAB
     Indication: ARTHRITIS
  3. RITUXAN [Suspect]
     Active Substance: RITUXIMAB
     Indication: FIBROMYALGIA
     Route: 065

REACTIONS (4)
  - Alopecia [Recovered/Resolved]
  - Intentional product use issue [Unknown]
  - Pharyngeal disorder [Recovered/Resolved]
  - Off label use [Unknown]
